FAERS Safety Report 12154318 (Version 1)
Quarter: 2016Q1

REPORT INFORMATION
  Report Type: Spontaneous
  Country: US (occurrence: None)
  Receive Date: 20160304
  Receipt Date: 20160304
  Transmission Date: 20160526
  Serious: Yes (Other)
  Sender: FDA-Public Use
  Company Number: None

PATIENT
  Age: 48 Year
  Sex: Female
  Weight: 58.06 kg

DRUGS (1)
  1. LAMOTRIGINE 200MG XYDUS [Suspect]
     Active Substance: LAMOTRIGINE
     Indication: EPILEPSY
     Route: 048
     Dates: start: 201501

REACTIONS (6)
  - Decreased appetite [None]
  - Product substitution issue [None]
  - Agitation [None]
  - Amnesia [None]
  - Seizure [None]
  - Condition aggravated [None]

NARRATIVE: CASE EVENT DATE: 201501
